FAERS Safety Report 20747020 (Version 1)
Quarter: 2022Q2

REPORT INFORMATION
  Report Type: Spontaneous
  Country: US (occurrence: US)
  Receive Date: 20220425
  Receipt Date: 20220425
  Transmission Date: 20220720
  Serious: No
  Sender: FDA-Public Use
  Company Number: US-PFIZER INC-2019036274

PATIENT
  Age: 74 Year
  Sex: Female

DRUGS (4)
  1. LYRICA [Suspect]
     Active Substance: PREGABALIN
     Indication: Restless legs syndrome
     Dosage: 100 MG, 3X/DAY
     Route: 048
  2. LYRICA [Suspect]
     Active Substance: PREGABALIN
     Indication: Osteoarthritis
     Dosage: 150 MG, 3X/DAY
     Route: 048
  3. LYRICA [Suspect]
     Active Substance: PREGABALIN
     Dosage: 150 MG, AS NEEDED (TAKE 1 CAPSULE BY MOUTH 3 TIMES DAILY AS NEEDED)
     Route: 048
     Dates: start: 20200310
  4. LYRICA [Suspect]
     Active Substance: PREGABALIN
     Dosage: 150 MG, 3X/DAY(FOR 90 DAYS)
     Route: 048

REACTIONS (5)
  - Off label use [Unknown]
  - Product prescribing error [Unknown]
  - Intentional product use issue [Unknown]
  - Malaise [Unknown]
  - Pain [Unknown]
